FAERS Safety Report 7803919-4 (Version None)
Quarter: 2011Q4

REPORT INFORMATION
  Report Type: 
  Country: None (occurrence: None)
  Receive Date: 20111010
  Receipt Date: 20111003
  Transmission Date: 20120403
  Serious: Yes (Other)
  Sender: FDA-Public Use
  Company Number: US-PFIZER INC-2011001062

PATIENT
  Sex: Female
  Weight: 158.73 kg

DRUGS (11)
  1. HUMULIN R [Concomitant]
     Indication: DIABETES MELLITUS
     Dosage: 38 IU, 3X/DAY
  2. LISINOPRIL [Concomitant]
     Indication: HYPERTENSION
     Dosage: 40 MG, DAILY
     Route: 048
  3. NOVOLOG [Concomitant]
     Indication: BLOOD INSULIN
     Dosage: 3X/DAY
     Route: 058
  4. CELEBREX [Suspect]
     Indication: MUSCULOSKELETAL STIFFNESS
     Dosage: 100 MG, DAILY
     Route: 048
     Dates: start: 20010101
  5. CELEBREX [Suspect]
     Indication: ARTHRITIS
     Dosage: 100 MG, 2X/DAY
     Route: 048
     Dates: end: 20110801
  6. LEVOTHYROXINE [Concomitant]
     Indication: HYPOTHYROIDISM
     Dosage: 1.25 MCG, DAILY
     Route: 048
  7. TRAMADOL [Concomitant]
     Indication: PAIN
     Dosage: 50 MG, 2X/DAY
     Route: 048
  8. LYRICA [Concomitant]
     Indication: NEURALGIA
     Dosage: 50 MG, 2X/DAY
     Route: 048
  9. LANTUS [Concomitant]
     Indication: DIABETES MELLITUS
     Dosage: 80 IU, DAILY
     Route: 058
  10. CELEBREX [Suspect]
     Indication: OSTEOPOROSIS
     Dosage: UNK MG, 2X/DAY
     Route: 048
     Dates: end: 20110622
  11. SIMVASTATIN [Suspect]
     Indication: BLOOD CHOLESTEROL INCREASED
     Dosage: 40 MG, DAILY
     Dates: end: 20110801

REACTIONS (6)
  - MUSCULOSKELETAL STIFFNESS [None]
  - WHITE BLOOD CELL COUNT INCREASED [None]
  - ALLERGY TO METALS [None]
  - RASH GENERALISED [None]
  - HYPOKINESIA [None]
  - DRUG EFFECT DECREASED [None]
